FAERS Safety Report 16743549 (Version 1)
Quarter: 2019Q3

REPORT INFORMATION
  Report Type: Spontaneous
  Country: FR (occurrence: FR)
  Receive Date: 20190827
  Receipt Date: 20190827
  Transmission Date: 20191005
  Serious: Yes (Hospitalization)
  Sender: FDA-Public Use
  Company Number: FR-AXELLIA-002653

PATIENT
  Age: 79 Year
  Sex: Male
  Weight: 72 kg

DRUGS (11)
  1. MECIR L.P [Concomitant]
     Dosage: STRENGTH: 0.4 MG, EXTENDED-RELEASE FILM-COATED TABLET
  2. ALLOPURINOL. [Suspect]
     Active Substance: ALLOPURINOL
     Indication: HYPERURICAEMIA
     Route: 048
     Dates: end: 201906
  3. VANCOMYCIN [Suspect]
     Active Substance: VANCOMYCIN
     Indication: SEPSIS
     Route: 042
     Dates: start: 201906, end: 201906
  4. JANUVIA [Suspect]
     Active Substance: SITAGLIPTIN PHOSPHATE
     Indication: TYPE 2 DIABETES MELLITUS
     Dosage: STRENGTH: 50 MG
     Route: 048
     Dates: end: 201906
  5. ODRIK [Suspect]
     Active Substance: TRANDOLAPRIL
     Indication: HYPERTENSION
     Dosage: STRENGTH: 4 MG
     Route: 048
     Dates: end: 201906
  6. LASILIX [Suspect]
     Active Substance: FUROSEMIDE
     Indication: PRODUCT USED FOR UNKNOWN INDICATION
     Dosage: STRENGTH: 20 MG
     Route: 048
     Dates: end: 201906
  7. BISOCE [Concomitant]
     Active Substance: BISOPROLOL
     Dosage: STRENGTH: 2.5 MG, DIVISIBLE COATED TABLET
  8. CRESTOR [Concomitant]
     Active Substance: ROSUVASTATIN CALCIUM
     Dosage: STRENGTH: 10 MG
  9. KARDEGIC [Concomitant]
     Active Substance: ASPIRIN DL-LYSINE
     Dosage: STRENGTH: 75 MG, POWDER FOR ORAL SOLUTION IN SACHET-DOSE
  10. VIMPAT [Concomitant]
     Active Substance: LACOSAMIDE
     Dosage: STRENGTH: 50 MG
  11. CORTANCYL [Concomitant]
     Active Substance: PREDNISONE

REACTIONS (1)
  - Chronic kidney disease [Not Recovered/Not Resolved]

NARRATIVE: CASE EVENT DATE: 201906
